FAERS Safety Report 4411940-1 (Version None)
Quarter: 2004Q3

REPORT INFORMATION
  Report Type: 
  Country: None (occurrence: None)
  Receive Date: 20040730
  Receipt Date: 20040607
  Transmission Date: 20050211
  Serious: Yes (Hospitalization)
  Sender: FDA-Public Use
  Company Number: DE-MERCK-0406DEU00048

PATIENT
  Age: 66 Year
  Sex: Female
  Weight: 85 kg

DRUGS (5)
  1. ATORVASTATIN CALCIUM [Concomitant]
     Route: 048
  2. INSULIN HUMAN [Concomitant]
     Indication: DIABETES MELLITUS
     Route: 030
  3. PIRETANIDE [Concomitant]
     Indication: CARDIAC FAILURE
     Route: 048
  4. RAMIPRIL [Concomitant]
     Indication: CARDIAC FAILURE
     Route: 048
  5. VIOXX [Suspect]
     Indication: PAIN
     Route: 048
     Dates: start: 20040113, end: 20040101

REACTIONS (1)
  - LEUKOCYTOCLASTIC VASCULITIS [None]
